FAERS Safety Report 4652901-7 (Version None)
Quarter: 2005Q2

REPORT INFORMATION
  Report Type: 
  Country: None (occurrence: None)
  Receive Date: 20050503
  Receipt Date: 20030508
  Transmission Date: 20051028
  Serious: Yes (Hospitalization)
  Sender: FDA-Public Use
  Company Number: 2005UW06534

PATIENT
  Age: 63 Year
  Sex: Male
  Weight: 65 kg

DRUGS (12)
  1. IRESSA [Suspect]
     Indication: NON-SMALL CELL LUNG CANCER
     Dosage: 250 MG DAILY PO
     Route: 048
     Dates: start: 20030319, end: 20030425
  2. CLINDAMYCIN [Suspect]
     Indication: SKIN INFECTION
     Dates: start: 20030411
  3. BUDESONIDE [Concomitant]
  4. IPROTROPIUM BROMIDE ABLUTEROL SULFATE [Concomitant]
  5. BUPROPION HYDROCHLORIDE [Concomitant]
  6. ZOPICLONE [Concomitant]
  7. METOPROLOL TARTRATE [Concomitant]
  8. PENTOXIFYLLINE [Concomitant]
  9. SIMVASTATIN [Concomitant]
  10. PANTOPRAZOLE SODIUM [Concomitant]
  11. ASPIRIN [Concomitant]
  12. PROCHLORPERAZINE [Concomitant]

REACTIONS (4)
  - DRUG TOXICITY [None]
  - POST PROCEDURAL NAUSEA [None]
  - POST PROCEDURAL VOMITING [None]
  - RENAL FAILURE [None]
